FAERS Safety Report 24254532 (Version 3)
Quarter: 2025Q3

REPORT INFORMATION
  Report Type: Spontaneous
  Country: US (occurrence: US)
  Receive Date: 20240827
  Receipt Date: 20250816
  Transmission Date: 20251020
  Serious: No
  Sender: ALEXION PHARMACEUTICALS
  Company Number: 2024A184033

PATIENT
  Age: 59 Year
  Sex: Male

DRUGS (2)
  1. BREZTRI [Suspect]
     Active Substance: BUDESONIDE\FORMOTEROL\GLYCOPYRROLATE
  2. SYMBICORT [Suspect]
     Active Substance: BUDESONIDE\FORMOTEROL FUMARATE DIHYDRATE

REACTIONS (5)
  - Nasopharyngitis [Unknown]
  - Obstructive airways disorder [Unknown]
  - Incorrect dose administered by device [Unknown]
  - Device delivery system issue [Unknown]
  - Device use issue [Unknown]

NARRATIVE: CASE EVENT DATE: 20240101
